FAERS Safety Report 14834146 (Version 2)
Quarter: 2018Q2

REPORT INFORMATION
  Report Type: Spontaneous
  Country: US (occurrence: US)
  Receive Date: 20180501
  Receipt Date: 20180511
  Transmission Date: 20180711
  Serious: Yes (Hospitalization)
  Sender: FDA-Public Use
  Company Number: US-VERTEX PHARMACEUTICALS-2018-002800

PATIENT
  Sex: Female
  Weight: 42 kg

DRUGS (22)
  1. LACTOBACILLUS RHAMNOSUS [Concomitant]
     Active Substance: LACTOBACILLUS RHAMNOSUS
     Dosage: 1 CAP, QD
     Route: 048
  2. PHYTONADIONE. [Concomitant]
     Active Substance: PHYTONADIONE
     Dosage: 5 MG, MON/WED/FRI
     Route: 048
  3. GLUCAGON. [Concomitant]
     Active Substance: GLUCAGON
     Dosage: 0.75 MG
     Route: 030
     Dates: end: 2018
  4. LANTUS [Concomitant]
     Active Substance: INSULIN GLARGINE
     Dosage: 16 UT, QD
     Route: 058
     Dates: end: 2018
  5. NEILMED SINUS RINSE [Concomitant]
     Active Substance: SODIUM BICARBONATE\SODIUM CHLORIDE
     Dosage: 1 PACKET, PRN
  6. SERTRALINE [Concomitant]
     Active Substance: SERTRALINE HYDROCHLORIDE
     Dosage: 75 MG AT BEDTIME
     Route: 048
  7. VITAMIN E                          /00110501/ [Concomitant]
     Active Substance: TOCOPHEROL
     Dosage: 200 UT, QD
     Route: 048
  8. ASTELIN                            /00085801/ [Concomitant]
     Active Substance: AZELASTINE HYDROCHLORIDE
     Dosage: 1 SPRAY BID
     Route: 045
  9. TRAZODONE [Concomitant]
     Active Substance: TRAZODONE HYDROCHLORIDE
     Dosage: 75 MG AT BEDTIME
     Route: 048
  10. FLUCONAZOLE. [Concomitant]
     Active Substance: FLUCONAZOLE
     Dosage: 100 MG, QD
     Route: 048
  11. PEPTAMEN [Concomitant]
     Dosage: 250M1/HR IN THE MORNING AND EVENING.
  12. ORKAMBI [Suspect]
     Active Substance: IVACAFTOR\LUMACAFTOR
     Indication: CYSTIC FIBROSIS
     Dosage: 2 (200/125 MG EACH) TABLETS, BID
     Route: 048
     Dates: start: 20150827, end: 2018
  13. MIRALAX [Concomitant]
     Active Substance: POLYETHYLENE GLYCOL 3350
     Indication: CONSTIPATION
     Dosage: 1 CAPFUL, QD
     Route: 048
  14. PULMOZYME [Concomitant]
     Active Substance: DORNASE ALFA
     Dosage: 2 VIALS VIA NEBULISER DAILY
     Route: 055
  15. NOVOLOG [Concomitant]
     Active Substance: INSULIN ASPART
     Dosage: 1 UT, PRN
     Route: 058
  16. DORNASE ALFA. [Concomitant]
     Active Substance: DORNASE ALFA
     Dosage: 2 VIAL, QD
     Route: 048
  17. CREON [Concomitant]
     Active Substance: PANCRELIPASE AMYLASE\PANCRELIPASE LIPASE\PANCRELIPASE PROTEASE
     Dosage: 5-6 CAPS PER MEAL, SPLIT BEGINNING AND END. TAKE 4 WITH A SNACK.
  18. CHOLECALCIFEROL [Concomitant]
     Active Substance: CHOLECALCIFEROL
     Dosage: 1 CAP,MON/THU
     Route: 048
  19. DRONABINOL. [Concomitant]
     Active Substance: DRONABINOL
     Dosage: 1 CAP, BID
  20. GLUCOSE [Concomitant]
     Active Substance: DEXTROSE
     Dosage: 16 GRAM, QID
  21. LANSOPRAZOLE. [Concomitant]
     Active Substance: LANSOPRAZOLE
     Dosage: 30 MG, BID
     Route: 048
  22. NYSTATIN. [Concomitant]
     Active Substance: NYSTATIN
     Dosage: 5 MILLILITER, QID
     Route: 048

REACTIONS (2)
  - Bronchopulmonary aspergillosis [Unknown]
  - Infective pulmonary exacerbation of cystic fibrosis [Recovering/Resolving]

NARRATIVE: CASE EVENT DATE: 2018
